FAERS Safety Report 14562002 (Version 1)
Quarter: 2018Q1

REPORT INFORMATION
  Report Type: Spontaneous
  Country: UM (occurrence: UM)
  Receive Date: 20180221
  Receipt Date: 20180221
  Transmission Date: 20180509
  Serious: Yes (Disabling)
  Sender: FDA-Public Use
  Company Number: None

PATIENT
  Age: 23 Year
  Sex: Female
  Weight: 81 kg

DRUGS (3)
  1. IBUPROFEN. [Concomitant]
     Active Substance: IBUPROFEN
  2. ASPRIN [Suspect]
     Active Substance: ASPIRIN
     Indication: DIZZINESS
     Dosage: ?          QUANTITY:1 TABLET(S);?
     Route: 048
  3. ASPRIN [Suspect]
     Active Substance: ASPIRIN
     Indication: CHEST PAIN
     Dosage: ?          QUANTITY:1 TABLET(S);?
     Route: 048

REACTIONS (3)
  - Fear [None]
  - Feeling hot [None]
  - Tremor [None]

NARRATIVE: CASE EVENT DATE: 20180220
